FAERS Safety Report 18264684 (Version 1)
Quarter: 2020Q3

REPORT INFORMATION
  Report Type: Other
  Country: FR (occurrence: FR)
  Receive Date: 20200914
  Receipt Date: 20200914
  Transmission Date: 20201103
  Serious: Yes (Hospitalization)
  Sender: FDA-Public Use
  Company Number: FR-B.BRAUN MEDICAL INC.-2090683

PATIENT
  Age: 49 Year
  Sex: Male

DRUGS (5)
  1. CEFOTAXIME [Concomitant]
     Active Substance: CEFOTAXIME SODIUM
  2. CEFTAZIDIME AND DEXTROSE [Suspect]
     Active Substance: CEFTAZIDIME
  3. CIPROFLOXACIN. [Concomitant]
     Active Substance: CIPROFLOXACIN
  4. LINEZOLID. [Concomitant]
     Active Substance: LINEZOLID
  5. SPIRAMYCIN [Concomitant]
     Active Substance: SPIRAMYCIN

REACTIONS (1)
  - Retinal degeneration [None]
